FAERS Safety Report 24108121 (Version 1)
Quarter: 2024Q3

REPORT INFORMATION
  Report Type: Spontaneous
  Country: AU (occurrence: AU)
  Receive Date: 20240718
  Receipt Date: 20240718
  Transmission Date: 20241017
  Serious: Yes (Hospitalization, Other)
  Sender: TERSERA THERAPEUTICS
  Company Number: AU-AstraZeneca-2020SE90916

PATIENT

DRUGS (2)
  1. GOSERELIN [Suspect]
     Active Substance: GOSERELIN
     Indication: Prostate cancer
     Dosage: 10.8MG UNKNOWN
     Route: 058
     Dates: start: 20200417
  2. ZOLADEX [Suspect]
     Active Substance: GOSERELIN ACETATE
     Indication: Prostate cancer
     Dosage: UNK
     Route: 065

REACTIONS (4)
  - Duodenal ulcer [Unknown]
  - Dementia Alzheimer^s type [Unknown]
  - Urinary tract infection [Unknown]
  - Ureteric obstruction [Unknown]

NARRATIVE: CASE EVENT DATE: 20200715
